FAERS Safety Report 24548022 (Version 2)
Quarter: 2025Q1

REPORT INFORMATION
  Report Type: Spontaneous
  Country: JP (occurrence: JP)
  Receive Date: 20241025
  Receipt Date: 20250129
  Transmission Date: 20250408
  Serious: Yes (Hospitalization)
  Sender: ROCHE
  Company Number: JP-CHUGAI-2024037126AA

PATIENT
  Age: 78 Year
  Sex: Male

DRUGS (6)
  1. TECENTRIQ [Suspect]
     Active Substance: ATEZOLIZUMAB
     Indication: Non-small cell lung cancer
     Route: 040
  2. BEVACIZUMAB [Concomitant]
     Active Substance: BEVACIZUMAB
     Indication: Non-small cell lung cancer
     Route: 040
  3. CARBOPLATIN [Concomitant]
     Active Substance: CARBOPLATIN
     Indication: Non-small cell lung cancer
     Route: 040
  4. CARBOPLATIN [Concomitant]
     Active Substance: CARBOPLATIN
     Route: 040
  5. PACLITAXEL [Concomitant]
     Active Substance: PACLITAXEL
     Indication: Non-small cell lung cancer
     Route: 040
  6. PACLITAXEL [Concomitant]
     Active Substance: PACLITAXEL
     Route: 040

REACTIONS (2)
  - Decreased appetite [Not Recovered/Not Resolved]
  - Urinary retention [Not Recovered/Not Resolved]
